FAERS Safety Report 5141642-8 (Version None)
Quarter: 2006Q4

REPORT INFORMATION
  Report Type: 
  Country: None (occurrence: None)
  Receive Date: 20061030
  Receipt Date: 20061030
  Transmission Date: 20070319
  Serious: Yes (Life-Threatening, Hospitalization, Other)
  Sender: FDA-Public Use
  Company Number: None

PATIENT
  Sex: Male
  Weight: 88.4514 kg

DRUGS (1)
  1. LAMICTAL [Suspect]
     Indication: MOOD ALTERED
     Dates: start: 20040831, end: 20050912

REACTIONS (3)
  - ADVERSE DRUG REACTION [None]
  - ANXIETY [None]
  - TOXIC EPIDERMAL NECROLYSIS [None]
